FAERS Safety Report 7357308-X (Version None)
Quarter: 2011Q1

REPORT INFORMATION
  Report Type: 
  Country: None (occurrence: None)
  Receive Date: 20110308
  Receipt Date: 20110222
  Transmission Date: 20110831
  Serious: Yes (Life-Threatening, Hospitalization)
  Sender: FDA-Public Use
  Company Number: 2011000446

PATIENT
  Age: 72 Year
  Sex: Female
  Weight: 55.3388 kg

DRUGS (5)
  1. PAZOPANIB / PLACEBO [Suspect]
     Indication: LUNG NEOPLASM MALIGNANT
     Dosage: (600 MG,DAILY),ORAL
     Route: 048
     Dates: start: 20101226
  2. SIMVASTATIN [Concomitant]
  3. GLUCOSAMINE (GLUCOSAMINE) [Concomitant]
  4. ERLOTINIB HYDROCHLORIDE [Suspect]
     Indication: LUNG NEOPLASM MALIGNANT
     Dosage: (150 MG,DAILY), ORAL
     Route: 048
     Dates: start: 20101216
  5. LOVASTATIN [Concomitant]

REACTIONS (1)
  - ANAEMIA [None]
